FAERS Safety Report 4393933-6 (Version None)
Quarter: 2004Q3

REPORT INFORMATION
  Report Type: 
  Country: None (occurrence: None)
  Receive Date: 20040702
  Receipt Date: 20040617
  Transmission Date: 20050211
  Serious: No
  Sender: FDA-Public Use
  Company Number: SE-2004-025688

PATIENT
  Age: 38 Year
  Sex: Female

DRUGS (1)
  1. LEVONOVA(LEVONORGESTREL) IUS [Suspect]
     Indication: CONTRACEPTION
     Dosage: 20 UG/DAY, CONT, INTRA-UTERINE
     Route: 015
     Dates: start: 19990101, end: 20040503

REACTIONS (2)
  - IUCD COMPLICATION [None]
  - PHARMACEUTICAL PRODUCT COMPLAINT [None]
